FAERS Safety Report 18855749 (Version 2)
Quarter: 2021Q1

REPORT INFORMATION
  Report Type: Spontaneous
  Country: US (occurrence: US)
  Receive Date: 20210205
  Receipt Date: 20210219
  Transmission Date: 20210420
  Serious: Yes (Hospitalization)
  Sender: FDA-Public Use
  Company Number: US-NEURELIS, INC.-2020NEU000225

PATIENT

DRUGS (1)
  1. VALTOCO [Suspect]
     Active Substance: DIAZEPAM
     Indication: SEIZURE
     Dosage: 10 MG, PRN
     Route: 045
     Dates: start: 20200520

REACTIONS (1)
  - Drug ineffective [Unknown]
